FAERS Safety Report 5876405-9 (Version None)
Quarter: 2008Q3

REPORT INFORMATION
  Report Type: 
  Country: None (occurrence: None)
  Receive Date: 20080910
  Receipt Date: 20080904
  Transmission Date: 20090109
  Serious: Yes (Other)
  Sender: FDA-Public Use
  Company Number: CA-BAYER-200832917NA

PATIENT
  Age: 38 Year
  Sex: Female
  Weight: 66 kg

DRUGS (1)
  1. YASMIN [Suspect]
     Route: 048

REACTIONS (6)
  - ABDOMINAL PAIN [None]
  - FATIGUE [None]
  - HEADACHE [None]
  - HYPOMENORRHOEA [None]
  - HYPOPITUITARISM [None]
  - OLIGOMENORRHOEA [None]
